FAERS Safety Report 15503661 (Version 1)
Quarter: 2018Q4

REPORT INFORMATION
  Report Type: Spontaneous
  Country: US (occurrence: US)
  Receive Date: 20181009
  Receipt Date: 20181009
  Transmission Date: 20190205
  Serious: No
  Sender: FDA-Public Use
  Company Number: None

PATIENT
  Age: 6 Year
  Sex: Female

DRUGS (1)
  1. ORKAMBI [Suspect]
     Active Substance: IVACAFTOR\LUMACAFTOR
     Dates: start: 201809

REACTIONS (3)
  - Abdominal tenderness [None]
  - Flushing [None]
  - Dark circles under eyes [None]

NARRATIVE: CASE EVENT DATE: 20180928
